FAERS Safety Report 7601926-8 (Version None)
Quarter: 2011Q3

REPORT INFORMATION
  Report Type: 
  Country: None (occurrence: None)
  Receive Date: 20110711
  Receipt Date: 20110705
  Transmission Date: 20111222
  Serious: Yes (Hospitalization, Congenital Anomaly, Other)
  Sender: FDA-Public Use
  Company Number: US-PFIZER INC-2007095297

PATIENT
  Sex: Female

DRUGS (3)
  1. PROMETHAZINE [Concomitant]
     Route: 064
  2. ZOFRAN [Concomitant]
     Route: 064
  3. ZOLOFT [Suspect]
     Indication: DEPRESSION
     Dosage: UNK
     Route: 064
     Dates: start: 20000724

REACTIONS (8)
  - LARYNGEAL STENOSIS [None]
  - ANGIOPATHY [None]
  - VIRAL UPPER RESPIRATORY TRACT INFECTION [None]
  - TAKAYASU'S ARTERITIS [None]
  - MATERNAL EXPOSURE DURING PREGNANCY [None]
  - RESPIRATORY DISTRESS [None]
  - ACUTE SINUSITIS [None]
  - UNDERWEIGHT [None]
